FAERS Safety Report 25667661 (Version 1)
Quarter: 2025Q3

REPORT INFORMATION
  Report Type: Spontaneous
  Country: CA (occurrence: CA)
  Receive Date: 20250811
  Receipt Date: 20250811
  Transmission Date: 20251021
  Serious: Yes (Hospitalization)
  Sender: NOVO NORDISK
  Company Number: CA-NOVOPROD-1496501

PATIENT
  Sex: Female

DRUGS (1)
  1. OZEMPIC [Suspect]
     Active Substance: SEMAGLUTIDE
     Indication: Product used for unknown indication

REACTIONS (4)
  - Gastrointestinal disorder [Unknown]
  - Vomiting [Unknown]
  - Dyspepsia [Unknown]
  - Weight decreased [Unknown]
